FAERS Safety Report 24744525 (Version 1)
Quarter: 2024Q4

REPORT INFORMATION
  Report Type: Other
  Country: PT (occurrence: PT)
  Receive Date: 20241217
  Receipt Date: 20241217
  Transmission Date: 20250115
  Serious: Yes (Death)
  Sender: BIOCON
  Company Number: None

PATIENT

DRUGS (6)
  1. OGIVRI [Suspect]
     Active Substance: TRASTUZUMAB-DKST
     Indication: HER2 positive breast cancer
     Dosage: 496MG (CYCLE 1) (POWDER FOR CONCENTRATE FOR SOLUTION FOR INFUSION)
     Route: 042
     Dates: start: 20241114
  2. DOCETAXEL [Suspect]
     Active Substance: DOCETAXEL
     Indication: HER2 positive breast cancer
     Dosage: 120MG (1 CYCLE) 3 WEEKS, INJECTABLE SOLUTION
     Route: 042
     Dates: start: 20241114
  3. CARBOPLATIN [Suspect]
     Active Substance: CARBOPLATIN
     Indication: HER2 positive breast cancer
     Dosage: 513MG (1 CYCLE)/3 WEEK, INJECTABLE SOLUTION
     Route: 042
     Dates: start: 20241114
  4. ENALAPRIL\HYDROCHLOROTHIAZIDE [Concomitant]
     Active Substance: ENALAPRIL\HYDROCHLOROTHIAZIDE
     Indication: Product used for unknown indication
     Dosage: UNK
     Route: 048
  5. METHOTREXATE SODIUM [Concomitant]
     Active Substance: METHOTREXATE SODIUM
     Indication: Product used for unknown indication
     Dosage: UNK
     Route: 048
  6. ROSUVASTATIN [Concomitant]
     Active Substance: ROSUVASTATIN
     Indication: Product used for unknown indication
     Dosage: UNK
     Route: 048

REACTIONS (2)
  - Renal failure [Fatal]
  - Deep vein thrombosis [Fatal]

NARRATIVE: CASE EVENT DATE: 20241126
